FAERS Safety Report 4836682-X (Version None)
Quarter: 2005Q4

REPORT INFORMATION
  Report Type: 
  Country: None (occurrence: None)
  Receive Date: 20051121
  Receipt Date: 20051108
  Transmission Date: 20060501
  Serious: Yes (Death, Hospitalization)
  Sender: FDA-Public Use
  Company Number: MEDI-0003827

PATIENT
  Age: 3 Month
  Sex: Female
  Weight: 4.3 kg

DRUGS (7)
  1. SYNAGIS [Suspect]
     Indication: ANTIVIRAL PROPHYLAXIS
     Dosage: 100 MG, 1 IN 30 D, INTRAMUSCULAR
     Route: 030
     Dates: start: 20051006, end: 20051006
  2. DIGOXIN [Concomitant]
  3. TIPEPIDINE HIBENZATE (TIPEPIDINE HIBENZATE) [Concomitant]
  4. L-CARBOCISTEINE (CARBOCISTEINE) [Concomitant]
  5. LYSOZYME HYDROCHLORIDE (LYSOZYME HYDROCHLORIDE) [Concomitant]
  6. ANTIBIOTICS RESISTANT LACTIC ACID BACTERIAE [Concomitant]
  7. ERYTHROMYCIN ETHYLSUCCINATE [Concomitant]

REACTIONS (6)
  - COUGH [None]
  - INFECTION [None]
  - PYREXIA [None]
  - RESPIRATORY DISORDER [None]
  - TACHYCARDIA [None]
  - VOMITING [None]
